FAERS Safety Report 9886846 (Version 1)
Quarter: 2014Q1

REPORT INFORMATION
  Report Type: Spontaneous
  Country: US (occurrence: US)
  Receive Date: 20140210
  Receipt Date: 20140210
  Transmission Date: 20141002
  Serious: Yes (Hospitalization)
  Sender: FDA-Public Use
  Company Number: US-MYLANLABS-2014S1002131

PATIENT
  Sex: Female

DRUGS (11)
  1. THIOTHIXENE CAPSULES, USP [Suspect]
     Indication: MENTAL DISORDER
     Route: 048
     Dates: start: 1984
  2. THIOTHIXENE CAPSULES, USP [Suspect]
     Indication: MENTAL DISORDER
     Route: 048
  3. THIOTHIXENE CAPSULES, USP [Suspect]
     Indication: MENTAL DISORDER
     Route: 048
  4. THIOTHIXENE CAPSULES, USP [Suspect]
     Indication: MENTAL DISORDER
     Route: 048
     Dates: start: 1984
  5. THIOTHIXENE CAPSULES, USP [Suspect]
     Indication: MENTAL DISORDER
     Route: 048
  6. THIOTHIXENE CAPSULES, USP [Suspect]
     Indication: MENTAL DISORDER
     Route: 048
  7. LISINOPRIL [Concomitant]
     Indication: BLOOD PRESSURE INCREASED
  8. METFORMIN [Concomitant]
     Indication: DIABETES MELLITUS
  9. BENZTROPINE [Concomitant]
  10. SYNTHROID [Concomitant]
     Indication: THYROID DISORDER
  11. INHALANT [Concomitant]
     Indication: CHRONIC OBSTRUCTIVE PULMONARY DISEASE

REACTIONS (5)
  - Mental status changes [Recovered/Resolved]
  - Insomnia [Recovered/Resolved]
  - Restlessness [Recovered/Resolved]
  - Palpitations [Recovered/Resolved]
  - Thinking abnormal [Recovered/Resolved]
